FAERS Safety Report 7248188-1 (Version None)
Quarter: 2011Q1

REPORT INFORMATION
  Report Type: 
  Country: None (occurrence: None)
  Receive Date: 20110127
  Receipt Date: 20110121
  Transmission Date: 20110831
  Serious: Yes (Death, Hospitalization, Other)
  Sender: FDA-Public Use
  Company Number: AU-BAYER-200824328GPV

PATIENT
  Sex: Female

DRUGS (3)
  1. YASMIN [Suspect]
     Indication: CONTRACEPTION
     Route: 048
  2. ISOTRETINOIN [Concomitant]
     Indication: ACNE
  3. I.V. SOLUTIONS [Concomitant]
     Indication: PRODUCT USED FOR UNKNOWN INDICATION

REACTIONS (5)
  - PULMONARY EMBOLISM [None]
  - NAUSEA [None]
  - DEEP VEIN THROMBOSIS [None]
  - DYSPNOEA [None]
  - COUGH [None]
